FAERS Safety Report 6058173-3 (Version None)
Quarter: 2009Q1

REPORT INFORMATION
  Report Type: 
  Country: None (occurrence: None)
  Receive Date: 20090130
  Receipt Date: 20090116
  Transmission Date: 20090719
  Serious: Yes (Death)
  Sender: FDA-Public Use
  Company Number: US-RANBAXY-2009US-21387

PATIENT

DRUGS (6)
  1. AMLODIPINE BESYLATE [Suspect]
     Indication: DRUG USE FOR UNKNOWN INDICATION
     Dosage: UNK, UNK
     Route: 048
  2. DIPHENHYDRAMINE HCL [Suspect]
     Indication: DRUG USE FOR UNKNOWN INDICATION
     Route: 048
  3. VALPROIC ACID [Suspect]
     Indication: DRUG USE FOR UNKNOWN INDICATION
     Route: 048
  4. ZOLPIDEM TARTRATE [Suspect]
     Indication: DRUG USE FOR UNKNOWN INDICATION
     Route: 048
  5. SERTRALINE [Suspect]
     Indication: DRUG USE FOR UNKNOWN INDICATION
     Route: 048
  6. BUSPIRONE HCL [Suspect]
     Indication: DRUG USE FOR UNKNOWN INDICATION
     Dosage: UNK
     Route: 048

REACTIONS (2)
  - COMPLETED SUICIDE [None]
  - INTENTIONAL OVERDOSE [None]
